FAERS Safety Report 5652956-7 (Version None)
Quarter: 2008Q1

REPORT INFORMATION
  Report Type: 
  Country: None (occurrence: None)
  Receive Date: 20080306
  Receipt Date: 20080229
  Transmission Date: 20080703
  Serious: Yes (Hospitalization)
  Sender: FDA-Public Use
  Company Number: JP-ASTRAZENECA-2008AP00317

PATIENT
  Age: 68 Year
  Sex: Female
  Weight: 53 kg

DRUGS (10)
  1. ESOMEPRAZOLE MAGNESIUM [Suspect]
     Indication: PROPHYLAXIS AGAINST GASTROINTESTINAL ULCER
     Route: 048
     Dates: start: 20071121, end: 20080109
  2. MOBIC [Concomitant]
     Indication: OSTEOARTHRITIS
     Route: 048
     Dates: start: 20050524
  3. MYSER [Concomitant]
     Indication: ECZEMA
     Route: 061
     Dates: start: 20060719
  4. OPALMON [Concomitant]
     Indication: LUMBAR SPINAL STENOSIS
     Route: 048
     Dates: start: 20070124
  5. LIPITOR [Concomitant]
     Indication: HYPERLIPIDAEMIA
     Route: 048
     Dates: start: 20070214
  6. ARTZ DISPO [Concomitant]
     Indication: OSTEOARTHRITIS
     Dosage: 1 DOSE FORM/2 WEEKS
     Route: 014
     Dates: start: 20070314
  7. XYLOCAINE [Concomitant]
     Indication: OSTEOARTHRITIS
     Dosage: NI/2 WEEKS
     Route: 014
  8. MUCOSTA [Concomitant]
     Indication: PROPHYLAXIS AGAINST GASTROINTESTINAL ULCER
     Route: 048
     Dates: start: 20071024
  9. KARY UNI [Concomitant]
     Indication: CATARACT
     Dosage: DOSE UNKNOWN
     Route: 047
  10. PRECOL TIME RELEASE TABLETS FOR COLDS [Concomitant]
     Indication: NASOPHARYNGITIS
     Route: 048
     Dates: start: 20080105, end: 20080106

REACTIONS (3)
  - GASTROINTESTINAL PERFORATION [None]
  - LIVER DISORDER [None]
  - PYELONEPHRITIS [None]
